FAERS Safety Report 6788207-X (Version None)
Quarter: 2010Q2

REPORT INFORMATION
  Report Type: 
  Country: None (occurrence: None)
  Receive Date: 20100621
  Receipt Date: 20100604
  Transmission Date: 20101027
  Serious: Yes (Hospitalization)
  Sender: FDA-Public Use
  Company Number: 2010002247

PATIENT
  Sex: Female

DRUGS (6)
  1. TARCEVA [Suspect]
     Indication: LUNG NEOPLASM MALIGNANT
     Dosage: 25 MG, TAKE 4 TABLETS (100MG) DAILY, ORAL
     Route: 048
     Dates: start: 20100525
  2. CALTRATE (CALCIUM CARBONATE) [Concomitant]
  3. PEPCID [Concomitant]
  4. ATIVAN [Concomitant]
  5. METOPROLOL SUCCINATE [Concomitant]
  6. MULTIVITAMIN [Concomitant]

REACTIONS (5)
  - ABDOMINAL PAIN [None]
  - DEEP VEIN THROMBOSIS [None]
  - PULMONARY EMBOLISM [None]
  - RASH [None]
  - URINARY TRACT INFECTION [None]
